FAERS Safety Report 5952611-X (Version None)
Quarter: 2008Q4

REPORT INFORMATION
  Report Type: 
  Country: None (occurrence: None)
  Receive Date: 20081031
  Receipt Date: 20080201
  Transmission Date: 20090506
  Serious: Yes (Other)
  Sender: FDA-Public Use
  Company Number: US-WYE-H02431208

PATIENT
  Age: 58 Year
  Sex: Female
  Weight: 49.94 kg

DRUGS (2)
  1. PREMARIN [Suspect]
     Indication: VULVOVAGINAL DRYNESS
     Dosage: 0.5MG ONE TIME, VAGINAL; 1 GRAM THREE DAYS IN A ROW, VAGINAL
     Route: 067
     Dates: start: 20070801, end: 20070801
  2. PREMARIN [Suspect]
     Indication: VULVOVAGINAL DRYNESS
     Dosage: 0.5MG ONE TIME, VAGINAL; 1 GRAM THREE DAYS IN A ROW, VAGINAL
     Route: 067
     Dates: start: 20071001, end: 20071001

REACTIONS (4)
  - ABDOMINAL DISTENSION [None]
  - ABDOMINAL PAIN [None]
  - HYPOAESTHESIA ORAL [None]
  - PANIC ATTACK [None]
